FAERS Safety Report 9271736 (Version 1)
Quarter: 2013Q2

REPORT INFORMATION
  Report Type: Spontaneous
  Country: US (occurrence: US)
  Receive Date: 20130506
  Receipt Date: 20130506
  Transmission Date: 20140414
  Serious: Yes (Other)
  Sender: FDA-Public Use
  Company Number: US-BRISTOL-MYERS SQUIBB COMPANY-18595884

PATIENT
  Age: 72 Year
  Sex: Female

DRUGS (4)
  1. SPRYCEL [Suspect]
     Indication: CHRONIC MYELOID LEUKAEMIA
     Dosage: REDUCED: 50MG DAILY, AUG2011?RESTARTED:03APR13
     Route: 048
     Dates: start: 20100803
  2. LOSARTAN [Concomitant]
  3. LASIX [Concomitant]
  4. ASPIRIN [Concomitant]

REACTIONS (2)
  - Colitis ulcerative [Unknown]
  - Erythema nodosum [Recovering/Resolving]
